FAERS Safety Report 14559952 (Version 1)
Quarter: 2018Q1

REPORT INFORMATION
  Report Type: Spontaneous
  Country: US (occurrence: US)
  Receive Date: 20180221
  Receipt Date: 20180221
  Transmission Date: 20180509
  Serious: No
  Sender: FDA-Public Use
  Company Number: US-BIOGEN-2017BI00383847

PATIENT
  Age: 59 Year
  Sex: Female

DRUGS (4)
  1. TYSABRI [Suspect]
     Active Substance: NATALIZUMAB
     Route: 042
     Dates: end: 20170324
  2. TYSABRI [Suspect]
     Active Substance: NATALIZUMAB
     Route: 042
     Dates: start: 20160422
  3. GABAPENTIN. [Concomitant]
     Active Substance: GABAPENTIN
     Indication: PRODUCT USED FOR UNKNOWN INDICATION
     Route: 065
  4. TYSABRI [Suspect]
     Active Substance: NATALIZUMAB
     Indication: MULTIPLE SCLEROSIS
     Route: 042
     Dates: start: 20140428, end: 20141106

REACTIONS (19)
  - Motor dysfunction [Unknown]
  - Tooth disorder [Not Recovered/Not Resolved]
  - Multiple sclerosis relapse [Unknown]
  - Fatigue [Unknown]
  - Drug effect decreased [Not Recovered/Not Resolved]
  - Bone contusion [Not Recovered/Not Resolved]
  - Dehydration [Unknown]
  - Multiple allergies [Not Recovered/Not Resolved]
  - Feeling hot [Unknown]
  - Head injury [Not Recovered/Not Resolved]
  - Contusion [Not Recovered/Not Resolved]
  - Tooth avulsion [Unknown]
  - Arthralgia [Not Recovered/Not Resolved]
  - Hypoaesthesia [Not Recovered/Not Resolved]
  - Drug ineffective [Recovered/Resolved]
  - Somnolence [Not Recovered/Not Resolved]
  - Liver disorder [Not Recovered/Not Resolved]
  - Gait disturbance [Unknown]
  - Nausea [Unknown]

NARRATIVE: CASE EVENT DATE: 201702
